FAERS Safety Report 17360424 (Version 2)
Quarter: 2020Q1

REPORT INFORMATION
  Report Type: Report from Study
  Country: NL (occurrence: NL)
  Receive Date: 20200203
  Receipt Date: 20200316
  Transmission Date: 20200409
  Serious: Yes (Death)
  Sender: FDA-Public Use
  Company Number: NVSC2020NL026559

PATIENT
  Sex: Male
  Weight: 90.8 kg

DRUGS (1)
  1. ACLASTA [Suspect]
     Active Substance: ZOLEDRONIC ACID
     Indication: OSTEOPOROSIS
     Dosage: (PRESCRIPTION PERIOD FROM 20 NOV 2019 TO 18 NOV 2020)
     Route: 065
     Dates: start: 201801, end: 201911

REACTIONS (1)
  - Lung cancer metastatic [Fatal]
